FAERS Safety Report 10231418 (Version 2)
Quarter: 2014Q2

REPORT INFORMATION
  Report Type: Spontaneous
  Country: US (occurrence: US)
  Receive Date: 20140611
  Receipt Date: 20140630
  Transmission Date: 20141212
  Serious: Yes (Other)
  Sender: FDA-Public Use
  Company Number: US-PFIZER INC-2014156398

PATIENT
  Age: 54 Year
  Sex: Male
  Weight: 102.4 kg

DRUGS (4)
  1. GABAPENTIN [Suspect]
     Dosage: 800 MG, 2X/DAY
     Route: 048
     Dates: start: 2009, end: 2010
  2. PERCOCET [Concomitant]
     Indication: PAIN
     Dosage: UNK
  3. OXYCODONE [Concomitant]
     Indication: PAIN
     Dosage: UNK
  4. AMLODIPINE [Concomitant]
     Indication: HYPERTENSION
     Dosage: 5 MG, 1X/DAY

REACTIONS (3)
  - Convulsion [Unknown]
  - Drug ineffective [Unknown]
  - Fibromyalgia [Unknown]
